FAERS Safety Report 4513508-5 (Version None)
Quarter: 2004Q4

REPORT INFORMATION
  Report Type: 
  Country: None (occurrence: None)
  Receive Date: 20041130
  Receipt Date: 20040629
  Transmission Date: 20050328
  Serious: Yes (Other)
  Sender: FDA-Public Use
  Company Number: SE-BRISTOL-MYERS SQUIBB COMPANY-12628871

PATIENT
  Age: 62 Year
  Sex: Female

DRUGS (6)
  1. TAXOL [Suspect]
     Indication: METASTATIC NEOPLASM
     Dosage: INITIAL DOSE: 06-APR-2004
     Route: 042
     Dates: start: 20040428, end: 20040428
  2. BETAPRED [Concomitant]
     Indication: PREMEDICATION
  3. TAVEGYL [Concomitant]
     Indication: PREMEDICATION
  4. NAVOBAN [Concomitant]
     Indication: PREMEDICATION
  5. ACINIL [Concomitant]
     Indication: PREMEDICATION
  6. PARAPLATIN [Concomitant]

REACTIONS (6)
  - BACK PAIN [None]
  - DRUG INEFFECTIVE [None]
  - DYSPNOEA [None]
  - ERYTHEMA [None]
  - HYPERSENSITIVITY [None]
  - MUSCLE TWITCHING [None]
